FAERS Safety Report 5343562-2 (Version None)
Quarter: 2007Q2

REPORT INFORMATION
  Report Type: 
  Country: None (occurrence: None)
  Receive Date: 20070531
  Receipt Date: 20070516
  Transmission Date: 20071010
  Serious: Yes (Other)
  Sender: FDA-Public Use
  Company Number: 2007RR-07673

PATIENT
  Age: 30 Year
  Sex: Male

DRUGS (1)
  1. ISOTRETINOIN [Suspect]
     Indication: ACNE
     Dosage: 45 MG, QD, ORAL
     Route: 048

REACTIONS (5)
  - APHASIA [None]
  - BRAIN SCAN ABNORMAL [None]
  - CEREBRAL ISCHAEMIA [None]
  - DYSARTHRIA [None]
  - FACIAL PALSY [None]
